FAERS Safety Report 8843410 (Version 1)
Quarter: 2012Q4

REPORT INFORMATION
  Report Type: 
  Country: IN (occurrence: IN)
  Receive Date: 20121016
  Receipt Date: 20121016
  Transmission Date: 20130627
  Serious: Yes (Hospitalization, Other)
  Sender: FDA-Public Use
  Company Number: IN-ELI_LILLY_AND_COMPANY-IN201203005809

PATIENT
  Age: 35 Year
  Sex: Female

DRUGS (3)
  1. HUMALOG 25% LISPRO, 75% NPL [Suspect]
     Indication: BLOOD GLUCOSE INCREASED
     Dosage: UNK
     Dates: start: 20120313, end: 20120319
  2. GLUCOPHAGE [Concomitant]
     Dosage: UNK
  3. PROGESTERONE [Concomitant]
     Dosage: UNK

REACTIONS (2)
  - Caesarean section [Recovered/Resolved]
  - Exposure during pregnancy [Recovered/Resolved]
